FAERS Safety Report 7292556-9 (Version None)
Quarter: 2011Q1

REPORT INFORMATION
  Report Type: 
  Country: None (occurrence: None)
  Receive Date: 20110215
  Receipt Date: 20110124
  Transmission Date: 20110831
  Serious: No
  Sender: FDA-Public Use
  Company Number: US-BAYER-2011-008423

PATIENT
  Sex: Male
  Weight: 125 kg

DRUGS (1)
  1. ALEVE (CAPLET) [Suspect]
     Dosage: UNK
     Route: 048

REACTIONS (2)
  - WHEEZING [None]
  - URTICARIA [None]
